FAERS Safety Report 18900411 (Version 1)
Quarter: 2021Q1

REPORT INFORMATION
  Report Type: Spontaneous
  Country: CH (occurrence: CH)
  Receive Date: 20210216
  Receipt Date: 20210216
  Transmission Date: 20210420
  Serious: Yes (Other)
  Sender: FDA-Public Use
  Company Number: CH-TEVA-2021-CH-1880205

PATIENT
  Age: 5 Year
  Sex: Female
  Weight: 22 kg

DRUGS (1)
  1. CO?AMOXI MEPHA 457 MG [Suspect]
     Active Substance: AMOXICILLIN\CLAVULANATE POTASSIUM
     Indication: GINGIVITIS
     Dosage: 40 ML DAILY; 2 SEPARATED DOSES; (AMOXICILLIN TRIHYDRATE: 400 MG + CLAVULANATE POTASSIUM: 57 MG)
     Route: 048
     Dates: start: 20210106, end: 20210112

REACTIONS (3)
  - Hallucination, auditory [Recovering/Resolving]
  - Anxiety [Recovering/Resolving]
  - Hallucination, visual [Recovering/Resolving]

NARRATIVE: CASE EVENT DATE: 20210107
